FAERS Safety Report 5217027-2 (Version None)
Quarter: 2007Q1

REPORT INFORMATION
  Report Type: 
  Country: None (occurrence: None)
  Receive Date: 20070119
  Receipt Date: 20070111
  Transmission Date: 20070707
  Serious: Yes (Death, Other)
  Sender: FDA-Public Use
  Company Number: 100#03#2007-00116

PATIENT
  Age: 28 Year
  Sex: Female

DRUGS (9)
  1. CITALOPRAM [Suspect]
     Indication: DEPRESSION
     Dosage: 30 MG (1/ 1 DAYS) ORAL
     Route: 048
  2. CLOZARIL [Suspect]
     Indication: SCHIZOPHRENIA
     Dosage: 400 MG (1/ 1 DAYS) ORAL
     Route: 048
     Dates: start: 20020301
  3. HALOPERIDOL [Suspect]
     Indication: DEPRESSION
     Dosage: 5 MG (2/  1DAYS) ORAL
     Route: 048
  4. LITHIUM CARBONATE [Suspect]
     Indication: DEPRESSION
     Dosage: 900 MG (1/ 1 DAYS) ORAL
     Route: 048
  5. DIAZEPAM [Concomitant]
  6. LACTULOSE [Concomitant]
  7. LEVOTHYROXINE SODIUM [Concomitant]
  8. PIRENZEPINE                              (PIRENZEPINE) [Concomitant]
  9. SENNA                              (SENNA ALEXANDRINA) [Concomitant]

REACTIONS (5)
  - ALCOHOL USE [None]
  - MYOCARDIAL INFARCTION [None]
  - NEUTROPHIL COUNT INCREASED [None]
  - VENTRICULAR HYPERTROPHY [None]
  - WHITE BLOOD CELL COUNT INCREASED [None]
